FAERS Safety Report 25038134 (Version 2)
Quarter: 2025Q2

REPORT INFORMATION
  Report Type: Report from Study
  Country: CA (occurrence: CA)
  Receive Date: 20250304
  Receipt Date: 20250402
  Transmission Date: 20250716
  Serious: Yes (Hospitalization, Other)
  Sender: PFIZER
  Company Number: CA-PFIZER INC-202300100144

PATIENT
  Age: 56 Year
  Sex: Male

DRUGS (4)
  1. RITUXIMAB [Suspect]
     Active Substance: RITUXIMAB
     Indication: Rheumatoid arthritis
     Route: 042
  2. ACETAMINOPHEN [Concomitant]
     Active Substance: ACETAMINOPHEN
     Route: 048
  3. DIPHENHYDRAMINE HYDROCHLORIDE [Concomitant]
     Active Substance: DIPHENHYDRAMINE HYDROCHLORIDE
     Route: 048
  4. METHYLPREDNISOLONE [Concomitant]
     Active Substance: METHYLPREDNISOLONE
     Route: 042

REACTIONS (10)
  - Dyspnoea [Unknown]
  - Bronchitis [Unknown]
  - Influenza like illness [Unknown]
  - Cachexia [Unknown]
  - Peripheral venous disease [Unknown]
  - Abnormal behaviour [Unknown]
  - Irritability [Unknown]
  - Neurogenic shock [Unknown]
  - Tension [Unknown]
  - Product dose omission issue [Unknown]
